FAERS Safety Report 20563006 (Version 1)
Quarter: 2022Q1

REPORT INFORMATION
  Report Type: Report from Study
  Country: US (occurrence: US)
  Receive Date: 20220307
  Receipt Date: 20220307
  Transmission Date: 20220423
  Serious: Yes (Other)
  Sender: FDA-Public Use
  Company Number: US-ABBVIE-22K-163-4302620-00

PATIENT
  Age: 43 Year
  Sex: Male

DRUGS (2)
  1. HUMIRA [Suspect]
     Active Substance: ADALIMUMAB
     Indication: Psoriasis
     Route: 058
  2. NITROGEN [Suspect]
     Active Substance: NITROGEN
     Indication: Product used for unknown indication
     Route: 065

REACTIONS (3)
  - Squamous cell carcinoma [Recovering/Resolving]
  - Tonsillectomy [Unknown]
  - Pain [Unknown]

NARRATIVE: CASE EVENT DATE: 20220201
